FAERS Safety Report 7000506-5 (Version None)
Quarter: 2010Q3

REPORT INFORMATION
  Report Type: 
  Country: None (occurrence: None)
  Receive Date: 20100920
  Receipt Date: 20100217
  Transmission Date: 20110219
  Serious: Yes (Hospitalization)
  Sender: FDA-Public Use
  Company Number: US-ASTRAZENECA-2008UW12179

PATIENT
  Age: 40 Year
  Sex: Male
  Weight: 122.5 kg

DRUGS (12)
  1. SEROQUEL [Suspect]
     Indication: SCHIZOPHRENIA, PARANOID TYPE
     Route: 048
     Dates: start: 20000101, end: 20060701
  2. SEROQUEL [Suspect]
     Dosage: 100 MG T1T PO QAM AND T2T PO HS NH
     Route: 048
     Dates: start: 20000128
  3. LYCOPINE [Concomitant]
     Dates: start: 20060101
  4. ABILIFY [Concomitant]
  5. HALDOL [Concomitant]
  6. NAVANE [Concomitant]
  7. RISPERDAL [Concomitant]
  8. STELAZINE [Concomitant]
     Dates: start: 20020101, end: 20080101
  9. THORAZINE [Concomitant]
  10. ZYPREXA [Concomitant]
  11. PROPRANOLOL HYDROCHLORIDE [Concomitant]
     Route: 048
     Dates: start: 20000128
  12. PSYLLIUM [Concomitant]
     Dosage: MIX 2 TABL IN FLUID AND DRINK QAM NH
     Route: 048
     Dates: start: 20000128

REACTIONS (3)
  - DIABETES MELLITUS [None]
  - DIABETES MELLITUS INADEQUATE CONTROL [None]
  - HYPERTENSION [None]
